FAERS Safety Report 6669368-X (Version None)
Quarter: 2010Q2

REPORT INFORMATION
  Report Type: 
  Country: None (occurrence: None)
  Receive Date: 20100406
  Receipt Date: 20100401
  Transmission Date: 20101027
  Serious: Yes (Hospitalization)
  Sender: FDA-Public Use
  Company Number: A0853048A

PATIENT
  Sex: Male

DRUGS (8)
  1. BIOTENE TOOTHPASTE [Suspect]
     Indication: DENTAL CARE
  2. BIOTENE DRY MOUTH MOUTHWASH [Suspect]
     Indication: DRY MOUTH
  3. COUMADIN [Suspect]
     Indication: ANTICOAGULANT THERAPY
     Route: 048
  4. LOTENSIN [Suspect]
     Indication: BLOOD PRESSURE ABNORMAL
     Route: 048
  5. CARDIZEM [Suspect]
     Indication: TACHYCARDIA
     Route: 048
  6. NEXIUM [Suspect]
     Route: 048
  7. ALLOPURINOL [Suspect]
     Indication: GOUT
     Dosage: 100MG PER DAY
     Route: 048
  8. BABY ASPIRIN [Suspect]
     Dosage: 81MG PER DAY
     Route: 048

REACTIONS (6)
  - DIZZINESS [None]
  - DRUG INTERACTION [None]
  - MALAISE [None]
  - NAUSEA [None]
  - NERVOUSNESS [None]
  - TREMOR [None]
